FAERS Safety Report 5916249-2 (Version None)
Quarter: 2008Q4

REPORT INFORMATION
  Report Type: 
  Country: None (occurrence: None)
  Receive Date: 20081013
  Receipt Date: 20081002
  Transmission Date: 20090506
  Serious: Yes (Hospitalization, Other)
  Sender: FDA-Public Use
  Company Number: PHHY2008DE23884

PATIENT
  Age: 34 Year
  Sex: Male

DRUGS (6)
  1. LEPONEX [Suspect]
     Dosage: 14.5 MG/DAY
     Dates: start: 20050504, end: 20050504
  2. LEPONEX [Suspect]
     Dosage: 25 MG/DAY
     Dates: start: 20050505, end: 20050506
  3. LEPONEX [Suspect]
     Dosage: 75 MG/DAY
     Dates: start: 20050508, end: 20050508
  4. LEPONEX [Suspect]
     Dosage: 100 MG/DAY
     Dates: start: 20050509, end: 20050510
  5. LEPONEX [Suspect]
     Dosage: 125 MG/DAY
     Dates: start: 20050511, end: 20050511
  6. LEPONEX [Suspect]
     Dosage: 150 MG/DAY
     Dates: start: 20050512, end: 20050519

REACTIONS (6)
  - ALANINE AMINOTRANSFERASE INCREASED [None]
  - GASTROINTESTINAL PAIN [None]
  - LIPASE INCREASED [None]
  - MALAISE [None]
  - PANCREATITIS [None]
  - WHITE BLOOD CELL COUNT INCREASED [None]
